FAERS Safety Report 14411855 (Version 1)
Quarter: 2018Q1

REPORT INFORMATION
  Report Type: Spontaneous
  Country: SG (occurrence: SG)
  Receive Date: 20180119
  Receipt Date: 20180119
  Transmission Date: 20180509
  Serious: Yes (Hospitalization, Other)
  Sender: FDA-Public Use
  Company Number: SG-MYLANLABS-2018M1003933

PATIENT
  Age: 26 Year
  Sex: Male

DRUGS (3)
  1. METHYLPREDNISOLONE. [Suspect]
     Active Substance: METHYLPREDNISOLONE
     Indication: STEROID THERAPY
     Dosage: UNK
     Route: 042
  2. PREDNISOLONE. [Suspect]
     Active Substance: PREDNISOLONE
     Indication: STEROID THERAPY
     Dosage: RECEIVED A TAPERING DOSE
     Route: 048
  3. METHYLPREDNISOLONE. [Suspect]
     Active Substance: METHYLPREDNISOLONE
     Dosage: 1G DAILY
     Route: 042

REACTIONS (4)
  - Herpes simplex [Unknown]
  - Blindness [Unknown]
  - Necrotising retinitis [Unknown]
  - Condition aggravated [Unknown]
